FAERS Safety Report 5000906-9 (Version None)
Quarter: 2006Q2

REPORT INFORMATION
  Report Type: 
  Country: None (occurrence: None)
  Receive Date: 20060512
  Receipt Date: 20060224
  Transmission Date: 20061013
  Serious: No
  Sender: FDA-Public Use
  Company Number: US-GLAXOSMITHKLINE-A0595101A

PATIENT
  Age: 45 Year
  Sex: Female

DRUGS (4)
  1. NABUMETONE [Suspect]
     Indication: DRUG USE FOR UNKNOWN INDICATION
     Dosage: 750MG TWICE PER DAY
     Route: 048
     Dates: start: 20010101
  2. SYNTHROID [Concomitant]
  3. NEURONTIN [Concomitant]
  4. ZANAFLEX [Concomitant]

REACTIONS (1)
  - FURUNCLE [None]
